FAERS Safety Report 6056570-3 (Version None)
Quarter: 2009Q1

REPORT INFORMATION
  Report Type: 
  Country: None (occurrence: None)
  Receive Date: 20090129
  Receipt Date: 20090121
  Transmission Date: 20090719
  Serious: Yes (Hospitalization)
  Sender: FDA-Public Use
  Company Number: US-JNJFOC-20090100227

PATIENT
  Sex: Male
  Weight: 92.31 kg

DRUGS (7)
  1. DOXIL [Suspect]
     Dosage: CYCLE 2
     Route: 042
  2. DOXIL [Suspect]
     Indication: MULTIPLE MYELOMA
     Dosage: CYCLE 1
     Route: 042
  3. VELCADE [Interacting]
     Dosage: CYCLE 2
     Route: 065
  4. VELCADE [Interacting]
     Indication: MULTIPLE MYELOMA
     Dosage: CYCLE 1
     Route: 065
  5. DEXAMETHASONE [Concomitant]
     Indication: MULTIPLE MYELOMA
     Route: 065
  6. KYTRIL [Concomitant]
     Indication: VOMITING
     Route: 065
  7. KYTRIL [Concomitant]
     Indication: NAUSEA
     Route: 065

REACTIONS (2)
  - DRUG INTERACTION [None]
  - LEUKOENCEPHALOPATHY [None]
